FAERS Safety Report 22113181 (Version 1)
Quarter: 2023Q1

REPORT INFORMATION
  Report Type: Spontaneous
  Country: US (occurrence: US)
  Receive Date: 20230320
  Receipt Date: 20230320
  Transmission Date: 20230418
  Serious: Yes (Hospitalization)
  Sender: FDA-Public Use
  Company Number: US-BROWN + BURK(UK) LIMITED-ML2023-01456

PATIENT
  Age: 65 Year
  Sex: Female
  Weight: 90.346 kg

DRUGS (1)
  1. CLINDAMYCIN [Suspect]
     Active Substance: CLINDAMYCIN
     Indication: Arthropod bite
     Dosage: SHE CONSUMED 30 CAPSULES.
     Route: 048
     Dates: start: 20210930, end: 20211009

REACTIONS (4)
  - Pain in extremity [Not Recovered/Not Resolved]
  - Arthralgia [Not Recovered/Not Resolved]
  - Joint swelling [Not Recovered/Not Resolved]
  - Joint stiffness [Not Recovered/Not Resolved]
